FAERS Safety Report 7517848-7 (Version None)
Quarter: 2011Q2

REPORT INFORMATION
  Report Type: 
  Country: None (occurrence: None)
  Receive Date: 20110602
  Receipt Date: 20110530
  Transmission Date: 20111010
  Serious: Yes (Other)
  Sender: FDA-Public Use
  Company Number: JP-BRISTOL-MYERS SQUIBB COMPANY-15738115

PATIENT
  Age: 40 Year

DRUGS (3)
  1. HALCION [Concomitant]
     Route: 048
  2. URSO 250 [Concomitant]
     Route: 048
  3. BARACLUDE [Suspect]
     Indication: HEPATITIS B
     Route: 048
     Dates: start: 20110201

REACTIONS (2)
  - BUNDLE BRANCH BLOCK [None]
  - ELECTROCARDIOGRAM T WAVE AMPLITUDE INCREASED [None]
